FAERS Safety Report 16113590 (Version 1)
Quarter: 2019Q1

REPORT INFORMATION
  Report Type: Spontaneous
  Country: US (occurrence: US)
  Receive Date: 20190325
  Receipt Date: 20190325
  Transmission Date: 20190418
  Serious: No
  Sender: FDA-Public Use
  Company Number: US-ALLERGAN-1842900US

PATIENT
  Sex: Female

DRUGS (3)
  1. SOMETHING SIMILAR TO LATISSE (UNSPECIFIED) [Concomitant]
  2. LATISSE [Suspect]
     Active Substance: BIMATOPROST
     Indication: HAIR GROWTH ABNORMAL
  3. LATISSE [Suspect]
     Active Substance: BIMATOPROST
     Indication: GROWTH OF EYELASHES
     Dosage: UNK UNK, QHS (ONE SMALL AMOUNT)
     Route: 061
     Dates: start: 201806, end: 201808

REACTIONS (2)
  - Off label use [Unknown]
  - Blepharitis [Recovered/Resolved]

NARRATIVE: CASE EVENT DATE: 2018
